FAERS Safety Report 6618950-4 (Version None)
Quarter: 2010Q1

REPORT INFORMATION
  Report Type: 
  Country: None (occurrence: None)
  Receive Date: 20100308
  Receipt Date: 20090318
  Transmission Date: 20100710
  Serious: Yes (Life-Threatening, Hospitalization)
  Sender: FDA-Public Use
  Company Number: DE-SANOFI-AVENTIS-A04200900241

PATIENT
  Age: 77 Year
  Sex: Female
  Weight: 95 kg

DRUGS (9)
  1. GLIBENCLAMIDE [Suspect]
     Route: 048
     Dates: start: 20000101, end: 20080727
  2. METFORMIN HYDROCHLORIDE [Interacting]
     Dosage: DOSE TEXT: 500 MG 2 IN DAY
     Route: 048
     Dates: start: 19950101
  3. METOPROLOL TARTRATE [Interacting]
     Dosage: DOSE TEXT: 100 MG, 2 IN DAY
     Route: 048
     Dates: start: 19990101
  4. LISINOPRIL [Interacting]
     Indication: DRUG USE FOR UNKNOWN INDICATION
     Route: 048
     Dates: start: 20030101, end: 20080727
  5. FURORESE [Interacting]
     Dosage: DOSE TEXT: 60 MG IN 1 DAY
     Route: 048
     Dates: start: 20020101, end: 20080808
  6. ACETYLSALICYLIC ACID [Concomitant]
     Indication: MYOCARDIAL INFARCTION
     Dosage: UNIT DOSE: 100 UNK
     Route: 048
     Dates: start: 20020101
  7. PANTOZOL [Concomitant]
     Dosage: UNIT DOSE: 40 MG
     Route: 048
     Dates: start: 20060101
  8. SIMVASTATIN [Concomitant]
     Dosage: UNIT DOSE: 40 MG
     Route: 048
     Dates: start: 20020101
  9. XIPAMIDE [Concomitant]
     Dosage: DOSE TEXT: 20 MG, ORAL 2 IN DAY
     Route: 048
     Dates: start: 20000101

REACTIONS (4)
  - CONFUSIONAL STATE [None]
  - DRUG INTERACTION [None]
  - HYPOGLYCAEMIA [None]
  - RENAL FAILURE ACUTE [None]
